FAERS Safety Report 9565969 (Version 2)
Quarter: 2013Q4

REPORT INFORMATION
  Report Type: Spontaneous
  Country: IT (occurrence: IT)
  Receive Date: 20130930
  Receipt Date: 20131011
  Transmission Date: 20140711
  Serious: Yes (Death, Hospitalization, Other)
  Sender: FDA-Public Use
  Company Number: IT-009507513-1309ITA013991

PATIENT
  Sex: Female

DRUGS (1)
  1. INEGY 10 MG/10 MG COMPRESSE [Suspect]
     Dosage: UNK
     Route: 048
     Dates: start: 20130921, end: 20130924

REACTIONS (3)
  - Bronchopulmonary disease [Fatal]
  - Rhabdomyolysis [Fatal]
  - Condition aggravated [Fatal]
